APPROVED DRUG PRODUCT: TELMISARTAN
Active Ingredient: TELMISARTAN
Strength: 20MG
Dosage Form/Route: TABLET;ORAL
Application: A218157 | Product #001 | TE Code: AB
Applicant: MANKIND PHARMA LTD
Approved: Oct 15, 2024 | RLD: No | RS: No | Type: RX